FAERS Safety Report 11127971 (Version 1)
Quarter: 2015Q2

REPORT INFORMATION
  Report Type: Spontaneous
  Country: GB (occurrence: GB)
  Receive Date: 20150521
  Receipt Date: 20150521
  Transmission Date: 20150821
  Serious: Yes (Hospitalization)
  Sender: FDA-Public Use
  Company Number: GB-TEVA-563308ACC

PATIENT
  Age: 65 Year
  Sex: Female
  Weight: 78 kg

DRUGS (4)
  1. AVASTIN [Suspect]
     Active Substance: BEVACIZUMAB
     Indication: GASTROOESOPHAGEAL CANCER
     Dosage: DATE OF MOST RECENT DOSE ADMINISTRATION 01 OCTOBER 2010.
     Route: 042
     Dates: start: 20100910
  2. CISPLATIN. [Suspect]
     Active Substance: CISPLATIN
     Indication: GASTROOESOPHAGEAL CANCER
     Dosage: DATE OF MOST RECENT DOSE ADMINISTRATION 01 OCTOBER 2010
     Route: 042
     Dates: start: 20100910
  3. EPIRUBICIN [Suspect]
     Active Substance: EPIRUBICIN
     Indication: GASTROOESOPHAGEAL CANCER
     Dosage: DATE OF MOST RECENT DOSE ADMINISTRATION 01 OCTOBER 2010
     Route: 042
     Dates: start: 20100910
  4. XELODA [Suspect]
     Active Substance: CAPECITABINE
     Indication: GASTROOESOPHAGEAL CANCER
     Dosage: DOSE: 2500, DATE OF MOST RECENT DOSE ADMINISTRATION 01 OCTOBER 2010.
     Route: 048
     Dates: start: 20100910

REACTIONS (3)
  - Vomiting [Recovered/Resolved]
  - Constipation [Recovered/Resolved]
  - Nausea [Unknown]

NARRATIVE: CASE EVENT DATE: 20101001
